FAERS Safety Report 25586593 (Version 1)
Quarter: 2025Q3

REPORT INFORMATION
  Report Type: Spontaneous
  Country: EU (occurrence: EU)
  Receive Date: 20250721
  Receipt Date: 20250721
  Transmission Date: 20251021
  Serious: Yes (Other)
  Sender: ELI LILLY AND COMPANY
  Company Number: None

PATIENT
  Age: 36 Year
  Sex: Male

DRUGS (3)
  1. TALTZ [Suspect]
     Active Substance: IXEKIZUMAB
     Indication: Axial spondyloarthritis
     Route: 058
     Dates: start: 20240327, end: 202504
  2. PANTOPRAZOL SODICO SESQUI HIDRATADO [Concomitant]
     Indication: Product used for unknown indication
     Dosage: 40 MG, DAILY
     Route: 065
  3. ZIBENAK [Concomitant]
     Indication: Product used for unknown indication
     Dosage: 25000 INTERNATIONAL UNIT, WEEKLY (1/W)
     Route: 048

REACTIONS (4)
  - Herpangina [Recovered/Resolved]
  - Rash pruritic [Recovering/Resolving]
  - Nasal turbinate hypertrophy [Not Recovered/Not Resolved]
  - Dyspnoea [Not Recovered/Not Resolved]

NARRATIVE: CASE EVENT DATE: 20240901
